FAERS Safety Report 26020263 (Version 1)
Quarter: 2025Q4

REPORT INFORMATION
  Report Type: Spontaneous
  Country: US (occurrence: None)
  Receive Date: 20251109
  Receipt Date: 20251109
  Transmission Date: 20260118
  Serious: Yes (Hospitalization, Other)
  Sender: FDA-CTU
  Company Number: None

PATIENT
  Age: 76 Year
  Sex: Male
  Weight: 87.75 kg

DRUGS (8)
  1. CREXONT [Suspect]
     Active Substance: CARBIDOPA\LEVODOPA
     Dosage: OTHER QUANTITY : 2 CAPSULE(S);?FREQUENCY : 3 TIMES A DAY;?
     Route: 048
     Dates: start: 20251101, end: 20251101
  2. RAMIPRIL [Concomitant]
     Active Substance: RAMIPRIL
  3. ROSUVASTATIN [Concomitant]
     Active Substance: ROSUVASTATIN
  4. METOPROLOL [Concomitant]
     Active Substance: METOPROLOL
  5. ASPIRIN [Concomitant]
     Active Substance: ASPIRIN
  6. FOLIC ACID [Concomitant]
     Active Substance: FOLIC ACID
  7. IBUPROFEN [Concomitant]
     Active Substance: IBUPROFEN
  8. MELATONIN [Concomitant]
     Active Substance: MELATONIN

REACTIONS (7)
  - Somnolence [None]
  - Disorientation [None]
  - Confusional state [None]
  - Mydriasis [None]
  - Dysarthria [None]
  - Adverse drug reaction [None]
  - Photophobia [None]

NARRATIVE: CASE EVENT DATE: 20251101
